FAERS Safety Report 8010829-9 (Version None)
Quarter: 2011Q4

REPORT INFORMATION
  Report Type: 
  Country: None (occurrence: None)
  Receive Date: 20111228
  Receipt Date: 20111215
  Transmission Date: 20120403
  Serious: Yes (Hospitalization, Other)
  Sender: FDA-Public Use
  Company Number: PHHY2011FR109746

PATIENT
  Sex: Male

DRUGS (8)
  1. PERINDOPRIL ERBUMINE [Interacting]
     Dosage: 10 MG, QD
     Dates: end: 20110622
  2. AMLODIPINE [Suspect]
     Dosage: UNK,
  3. VOLTAREN [Interacting]
     Indication: ARTHRALGIA
     Dosage: 1 DF, BID
     Route: 048
  4. PLAVIX [Suspect]
     Dosage: 75 MG, QD
     Dates: end: 20110622
  5. LYRICA [Concomitant]
     Indication: DIABETIC NEUROPATHY
     Dosage: 200 MG, BID
     Dates: start: 20110906
  6. FUROSEMIDE [Interacting]
     Indication: HYPERTENSION
     Dosage: 20 MG, QD
  7. METFORMIN HYDROCHLORIDE [Suspect]
     Indication: TYPE 2 DIABETES MELLITUS
     Dosage: UNK,
     Route: 048
     Dates: end: 20110622
  8. DIAMICRON [Suspect]
     Indication: TYPE 2 DIABETES MELLITUS
     Dosage: 30 MG, TID
     Route: 048
     Dates: end: 20110622

REACTIONS (16)
  - SOMNOLENCE [None]
  - RENAL FAILURE ACUTE [None]
  - COUGH [None]
  - ANURIA [None]
  - BLOOD CREATININE INCREASED [None]
  - DRUG INTERACTION [None]
  - URINE OUTPUT DECREASED [None]
  - SINOATRIAL BLOCK [None]
  - HYPERKALAEMIA [None]
  - METABOLIC ACIDOSIS [None]
  - RESPIRATORY DISORDER [None]
  - BRADYCARDIA [None]
  - DIABETES MELLITUS INADEQUATE CONTROL [None]
  - OEDEMA PERIPHERAL [None]
  - DYSPNOEA [None]
  - DECREASED APPETITE [None]
